FAERS Safety Report 5224678-8 (Version None)
Quarter: 2007Q1

REPORT INFORMATION
  Report Type: 
  Country: None (occurrence: None)
  Receive Date: 20070129
  Receipt Date: 20070129
  Transmission Date: 20070707
  Serious: Yes (Life-Threatening, Hospitalization)
  Sender: FDA-Public Use
  Company Number: None

PATIENT
  Age: 9 Year
  Sex: Female
  Weight: 20 kg

DRUGS (6)
  1. CEFTRIAXONE 1CM INJ TABUK [Suspect]
     Indication: ANAPHYLACTIC REACTION
     Dosage: 2 GM IV
     Route: 042
     Dates: start: 20070108, end: 20070108
  2. CEFTRIAXONE 1CM INJ TABUK [Suspect]
     Indication: INFUSION RELATED REACTION
     Dosage: 2 GM IV
     Route: 042
     Dates: start: 20070108, end: 20070108
  3. MIDAZOLAM HCL [Concomitant]
  4. FENTANYL TRANSDERMAL SYSTEM [Concomitant]
  5. BICARBONATE [Concomitant]
  6. RBC TRANSFUSION [Concomitant]

REACTIONS (4)
  - ANAPHYLACTIC REACTION [None]
  - DYSPNOEA [None]
  - HYPOTENSION [None]
  - INFUSION RELATED REACTION [None]
